FAERS Safety Report 8802971 (Version 1)
Quarter: 2012Q4

REPORT INFORMATION
  Report Type: 
  Country: US (occurrence: US)
  Receive Date: 20120924
  Receipt Date: 20120924
  Transmission Date: 20130627
  Serious: Yes (Other)
  Sender: FDA-Public Use
  Company Number: US-BAYER-2012-097080

PATIENT
  Age: 52 Year
  Sex: Female
  Weight: 80.54 kg

DRUGS (2)
  1. YASMIN [Suspect]
  2. IBUPROFEN [Concomitant]

REACTIONS (1)
  - Deep vein thrombosis [None]
